FAERS Safety Report 12147519 (Version 4)
Quarter: 2016Q1

REPORT INFORMATION
  Report Type: Report from Study
  Country: US (occurrence: US)
  Receive Date: 20160304
  Receipt Date: 20160330
  Transmission Date: 20160526
  Serious: Yes (Other)
  Sender: FDA-Public Use
  Company Number: US-GILEAD-2016-0201014

PATIENT
  Age: 60 Year
  Sex: Female

DRUGS (1)
  1. LEDIPASVIR/SOFOSBUVIR [Suspect]
     Active Substance: LEDIPASVIR\SOFOSBUVIR
     Indication: CHRONIC HEPATITIS C
     Dosage: 1 DF, QD
     Route: 048
     Dates: start: 20160101

REACTIONS (10)
  - Glaucoma [Unknown]
  - Feeling abnormal [Unknown]
  - Cardiac flutter [Unknown]
  - Dizziness exertional [Unknown]
  - Cardiac murmur functional [Unknown]
  - Dizziness [Unknown]
  - Heart rate increased [Unknown]
  - Presyncope [Unknown]
  - Therapeutic response unexpected [Unknown]
  - Insomnia [Unknown]

NARRATIVE: CASE EVENT DATE: 20160225
